FAERS Safety Report 8124274-9 (Version None)
Quarter: 2012Q1

REPORT INFORMATION
  Report Type: 
  Country: None (occurrence: None)
  Receive Date: 20120209
  Receipt Date: 20120208
  Transmission Date: 20120608
  Serious: Yes (Hospitalization)
  Sender: FDA-Public Use
  Company Number: IT-PFIZER INC-2012034236

PATIENT
  Age: 81 Year
  Sex: Female

DRUGS (3)
  1. DOXAZOSIN [Concomitant]
  2. CELEBREX [Suspect]
     Indication: ARTHRALGIA
     Dosage: 1 UNIT DOSE DAILY
     Route: 048
     Dates: start: 20120114, end: 20120115
  3. BISOPROLOL FUMARATE [Concomitant]

REACTIONS (2)
  - PURPURA [None]
  - THROMBOCYTOPENIA [None]
